FAERS Safety Report 7813303-5 (Version None)
Quarter: 2011Q4

REPORT INFORMATION
  Report Type: 
  Country: None (occurrence: None)
  Receive Date: 20111013
  Receipt Date: 20111007
  Transmission Date: 20120403
  Serious: Yes (Other)
  Sender: FDA-Public Use
  Company Number: US-AMGEN-USASP2011040641

PATIENT
  Sex: Female
  Weight: 139 kg

DRUGS (4)
  1. PROLIA [Suspect]
     Indication: OSTEOPOROSIS
  2. VITAMIN D [Concomitant]
  3. PROLIA [Suspect]
     Indication: OSTEOPOROSIS POSTMENOPAUSAL
     Dosage: 60 MG, Q6MO
     Route: 058
     Dates: start: 20110621, end: 20110804
  4. CALCIUM CARBONATE [Concomitant]

REACTIONS (5)
  - DERMATITIS [None]
  - PAPULE [None]
  - DRUG ERUPTION [None]
  - DRUG HYPERSENSITIVITY [None]
  - PRURITUS [None]
